FAERS Safety Report 10010755 (Version 3)
Quarter: 2014Q3

REPORT INFORMATION
  Report Type: Spontaneous
  Country: DK (occurrence: None)
  Receive Date: 20140311
  Receipt Date: 20140808
  Transmission Date: 20150326
  Serious: Yes (Other)
  Sender: FDA-Public Use
  Company Number: AUR-APL-2014-02369

PATIENT
  Sex: Female

DRUGS (1)
  1. LAMOTRIGINE ^AUROBINDO^, TABLETTER 25 MG (LAMOTRIGINE) TABLET, 25MG [Suspect]
     Active Substance: LAMOTRIGINE
     Indication: EPILEPSY
     Dosage: 1 D

REACTIONS (2)
  - Alopecia [None]
  - Osteoporosis [None]
